FAERS Safety Report 5924349-6 (Version None)
Quarter: 2008Q4

REPORT INFORMATION
  Report Type: 
  Country: None (occurrence: None)
  Receive Date: 20081020
  Receipt Date: 20081008
  Transmission Date: 20090506
  Serious: Yes (Hospitalization)
  Sender: FDA-Public Use
  Company Number: US-PFIZER INC-2008070936

PATIENT
  Sex: Female
  Weight: 72.6 kg

DRUGS (3)
  1. LYRICA [Suspect]
     Indication: NEURALGIA
     Route: 048
     Dates: start: 20060113
  2. CYMBALTA [Concomitant]
     Indication: DEPRESSION
     Dosage: DAILY DOSE:30MG
  3. CYMBALTA [Concomitant]
     Indication: ANXIETY

REACTIONS (2)
  - MOVEMENT DISORDER [None]
  - SPEECH DISORDER [None]
